FAERS Safety Report 7572698-0 (Version None)
Quarter: 2011Q2

REPORT INFORMATION
  Report Type: 
  Country: None (occurrence: None)
  Receive Date: 20110620
  Receipt Date: 20110603
  Transmission Date: 20111010
  Serious: Yes (Hospitalization, Other)
  Sender: FDA-Public Use
  Company Number: 2011MA006763

PATIENT
  Age: 42 Year
  Sex: Female

DRUGS (4)
  1. FLUOXETINE [Suspect]
     Indication: SCHIZOAFFECTIVE DISORDER
     Dosage: 40 MG; QD
  2. FLUOXETINE [Suspect]
     Indication: COMPLETED SUICIDE
     Dosage: 40 MG; QD
  3. LITHIUM [Concomitant]
  4. SERTINDOLE [Concomitant]

REACTIONS (4)
  - LEUKOCYTOSIS [None]
  - SUICIDE ATTEMPT [None]
  - SOMNOLENCE [None]
  - MULTIPLE DRUG OVERDOSE INTENTIONAL [None]
